FAERS Safety Report 5020141-8 (Version None)
Quarter: 2006Q2

REPORT INFORMATION
  Report Type: 
  Country: None (occurrence: None)
  Receive Date: 20060602
  Receipt Date: 20060515
  Transmission Date: 20061013
  Serious: Yes (Hospitalization)
  Sender: FDA-Public Use
  Company Number: CO200603002539

PATIENT
  Age: 29 Year
  Sex: Male

DRUGS (3)
  1. CYMBALTA [Suspect]
     Indication: PANIC DISORDER
     Dosage: 60 MG, DAILY (1/D, ORAL
     Route: 048
     Dates: start: 20050701, end: 20051231
  2. SERTRALINE [Concomitant]
  3. FLUVOXAMINE MALEATE [Concomitant]

REACTIONS (6)
  - ALCOHOL USE [None]
  - BIPOLAR I DISORDER [None]
  - DEPRESSION [None]
  - DRUG INEFFECTIVE [None]
  - OBSESSIVE-COMPULSIVE DISORDER [None]
  - POLYSUBSTANCE ABUSE [None]
